FAERS Safety Report 9293787 (Version 2)
Quarter: 2013Q3

REPORT INFORMATION
  Report Type: Spontaneous
  Country: FR (occurrence: FR)
  Receive Date: 20130516
  Receipt Date: 20130920
  Transmission Date: 20140515
  Serious: Yes (Other)
  Sender: FDA-Public Use
  Company Number: FR-UCBSA-081839

PATIENT
  Age: 35 Year
  Sex: Male

DRUGS (3)
  1. CIMZIA [Suspect]
     Indication: SPONDYLITIS
     Route: 058
     Dates: start: 20120124, end: 20120501
  2. SIMPONI [Suspect]
     Dosage: UNKNOWN DOSE
     Route: 058
     Dates: start: 20120913, end: 20121113
  3. SEVREDOL [Concomitant]

REACTIONS (2)
  - Hepatocellular injury [Recovering/Resolving]
  - Hepatic steatosis [Not Recovered/Not Resolved]
